FAERS Safety Report 6741181-4 (Version None)
Quarter: 2010Q2

REPORT INFORMATION
  Report Type: 
  Country: None (occurrence: None)
  Receive Date: 20100526
  Receipt Date: 20100517
  Transmission Date: 20101027
  Serious: Yes (Life-Threatening)
  Sender: FDA-Public Use
  Company Number: JP-TYCO HEALTHCARE/MALLINCKRODT-T201001234

PATIENT
  Age: 34 Year
  Sex: Male
  Weight: 70 kg

DRUGS (3)
  1. OPTIRAY 350 [Suspect]
     Indication: ANGIOGRAM
     Dosage: 73 ML, SINGLE
     Route: 042
     Dates: start: 20100514, end: 20100514
  2. NIFEDIPINE [Concomitant]
     Indication: HYPERTENSION
     Dosage: 20 MG, QD
     Route: 048
     Dates: start: 20090901
  3. VALSARTAN [Concomitant]
     Indication: HYPERTENSION
     Dosage: 160 MG, QD
     Route: 048
     Dates: start: 20090901

REACTIONS (6)
  - COUGH [None]
  - DYSPNOEA [None]
  - GENERALISED ERYTHEMA [None]
  - SNEEZING [None]
  - URTICARIA [None]
  - WHEEZING [None]
